FAERS Safety Report 21868904 (Version 1)
Quarter: 2023Q1

REPORT INFORMATION
  Report Type: Report from Study
  Country: IE (occurrence: IE)
  Receive Date: 20230117
  Receipt Date: 20230117
  Transmission Date: 20230418
  Serious: Yes (Death, Hospitalization)
  Sender: FDA-Public Use
  Company Number: IE-AstraZeneca-2022A352821

PATIENT
  Age: 1 Year
  Sex: Female

DRUGS (6)
  1. SYNAGIS [Suspect]
     Active Substance: PALIVIZUMAB
     Indication: Heart disease congenital
     Dates: start: 20221018
  2. SYNAGIS [Suspect]
     Active Substance: PALIVIZUMAB
     Dosage: MEDICATION ERROR
     Dates: start: 20221115
  3. SYNAGIS [Suspect]
     Active Substance: PALIVIZUMAB
     Dosage: MEDICATION ERROR
     Dates: start: 20221214
  4. FRUSOMIDE [Concomitant]
  5. SPIRONOLACTONE [Concomitant]
     Active Substance: SPIRONOLACTONE
  6. MULTIVITAMIN SPRAY [Concomitant]

REACTIONS (5)
  - Death [Fatal]
  - Hand-foot-and-mouth disease [Unknown]
  - Hypertension [Unknown]
  - Rash [Unknown]
  - Incorrect dose administered [Unknown]

NARRATIVE: CASE EVENT DATE: 20221018
